FAERS Safety Report 7598079-1 (Version None)
Quarter: 2011Q3

REPORT INFORMATION
  Report Type: 
  Country: None (occurrence: None)
  Receive Date: 20110708
  Receipt Date: 20110628
  Transmission Date: 20111222
  Serious: Yes (Hospitalization, Disabling)
  Sender: FDA-Public Use
  Company Number: US-VERTEX PHARMACEUTICALS INC.-AE-2011-000256

PATIENT
  Sex: Male
  Weight: 99.426 kg

DRUGS (14)
  1. VITAMIN D [Concomitant]
     Indication: VITAMIN D DEFICIENCY
  2. PEGINTERFERON ALFA-2A [Suspect]
     Indication: HEPATITIS C
     Route: 058
     Dates: start: 20110325
  3. EXTRA STRENGTH TYLENOL [Concomitant]
     Dates: start: 20110325
  4. BENICAR [Concomitant]
     Indication: HYPERTENSION
  5. ZOFRAN [Concomitant]
  6. DEXILANT [Concomitant]
  7. RIBAVIRIN [Suspect]
     Indication: HEPATITIS C
     Route: 048
     Dates: start: 20110325, end: 20110520
  8. RIBAVIRIN [Suspect]
     Dates: start: 20110520, end: 20110527
  9. ALLOPURINOL [Concomitant]
     Indication: HYPERURICAEMIA
     Dates: start: 20110228
  10. ASPIRIN [Concomitant]
  11. VX-950 [Suspect]
     Indication: HEPATITIS C
     Route: 048
     Dates: start: 20110525
  12. RIBAVIRIN [Suspect]
     Dates: start: 20110616
  13. DELSYM [Concomitant]
  14. MYLANTA [Concomitant]
     Dates: start: 20110327

REACTIONS (1)
  - ANAEMIA [None]
